FAERS Safety Report 10679094 (Version 1)
Quarter: 2014Q4

REPORT INFORMATION
  Report Type: Spontaneous
  Country: US (occurrence: US)
  Receive Date: 20141229
  Receipt Date: 20141229
  Transmission Date: 20150529
  Serious: No
  Sender: FDA-Public Use
  Company Number: US-PFIZER INC-2014352424

PATIENT
  Age: 52 Year
  Sex: Female
  Weight: 117 kg

DRUGS (8)
  1. PRAZOSIN [Concomitant]
     Active Substance: PRAZOSIN
     Dosage: TAKE 1 TO 2 CAPSULES, 1X/DAY
     Route: 048
  2. METHOCARBAMOL. [Concomitant]
     Active Substance: METHOCARBAMOL
     Dosage: 500 MG, AS NEEDED(3X/DAY)
  3. LYRICA [Suspect]
     Active Substance: PREGABALIN
     Indication: PAIN
     Dosage: 75 MG, 3X/DAY
  4. HYDROXYZINE [Concomitant]
     Active Substance: HYDROXYZINE\HYDROXYZINE HYDROCHLORIDE
     Dosage: 50 MG, 2X/DAY
  5. SUBUTEX [Concomitant]
     Active Substance: BUPRENORPHINE HYDROCHLORIDE
     Dosage: 4 MG, 3X/DAY
  6. LYRICA [Suspect]
     Active Substance: PREGABALIN
     Dosage: 100 MG, 3X/DAY
  7. PANTOPRAZOLE SODIUM DR [Concomitant]
     Active Substance: PANTOPRAZOLE SODIUM
     Dosage: 20 MG, 2X/DAY
  8. DULOXETINE HYDROCHLORIDE. [Concomitant]
     Active Substance: DULOXETINE HYDROCHLORIDE
     Dosage: 60 MG, 1X/DAY

REACTIONS (4)
  - Disease progression [Unknown]
  - Nervousness [Unknown]
  - Pain in extremity [Not Recovered/Not Resolved]
  - Attention deficit/hyperactivity disorder [Unknown]
